FAERS Safety Report 11420647 (Version 3)
Quarter: 2015Q4

REPORT INFORMATION
  Report Type: Report from Study
  Country: JP (occurrence: JP)
  Receive Date: 20150826
  Receipt Date: 20151002
  Transmission Date: 20160304
  Serious: Yes (Hospitalization, Other)
  Sender: FDA-Public Use
  Company Number: JP-AMGEN-JPNCT2015086814

PATIENT
  Age: 59 Year
  Sex: Male

DRUGS (6)
  1. DABRAFENIB [Suspect]
     Active Substance: DABRAFENIB
     Indication: COLORECTAL CANCER
     Dosage: 150 MG, BID
     Route: 065
     Dates: start: 20150708, end: 20150817
  2. PANITUMUMAB [Suspect]
     Active Substance: PANITUMUMAB
     Indication: COLORECTAL CANCER
     Dosage: UNK
     Route: 042
     Dates: start: 20150708
  3. TRAMETINIB [Suspect]
     Active Substance: TRAMETINIB
     Dosage: 0 MG, QD
     Route: 048
     Dates: start: 20150712, end: 20150712
  4. TRAMETINIB [Suspect]
     Active Substance: TRAMETINIB
     Dosage: 2 MG, QD
     Route: 048
     Dates: start: 20150713, end: 20150817
  5. TRAMETINIB [Suspect]
     Active Substance: TRAMETINIB
     Indication: COLORECTAL CANCER
     Dosage: 2 MG, QD
     Route: 048
     Dates: start: 20150708, end: 20150710
  6. TRAMETINIB [Suspect]
     Active Substance: TRAMETINIB
     Dosage: 4 MG, QD
     Route: 048
     Dates: start: 20150711, end: 20150711

REACTIONS (1)
  - Pancreatitis [Recovered/Resolved]

NARRATIVE: CASE EVENT DATE: 20150815
